FAERS Safety Report 5337270-1 (Version None)
Quarter: 2007Q2

REPORT INFORMATION
  Report Type: 
  Country: None (occurrence: None)
  Receive Date: 20070529
  Receipt Date: 20070518
  Transmission Date: 20071010
  Serious: Yes (Other)
  Sender: FDA-Public Use
  Company Number: B0471460A

PATIENT
  Age: 39 Year
  Sex: Female

DRUGS (1)
  1. AMOXIL [Suspect]
     Indication: DRUG USE FOR UNKNOWN INDICATION
     Dosage: 500MG UNKNOWN
     Route: 048

REACTIONS (1)
  - PSORIASIS [None]
